FAERS Safety Report 8520969-3 (Version None)
Quarter: 2012Q3

REPORT INFORMATION
  Report Type: 
  Country: None (occurrence: None)
  Receive Date: 20120706
  Receipt Date: 20120625
  Transmission Date: 20120928
  Serious: Yes (Hospitalization)
  Sender: FDA-Public Use
  Company Number: 2012P1030316

PATIENT
  Sex: Female
  Weight: 52.1637 kg

DRUGS (13)
  1. ASPIRIN [Concomitant]
  2. METHOCARBAMOL [Concomitant]
  3. SPIRIVA [Concomitant]
  4. LEVOTHYROXINE SODIUM [Concomitant]
  5. ONDANSETRON [Concomitant]
  6. FORTEO [Concomitant]
  7. PREDNISONE [Suspect]
     Indication: RHEUMATOID ARTHRITIS
     Dosage: 5 MG;QD;PO
     Route: 048
  8. VANCOMYCIN [Suspect]
     Indication: CELLULITIS
     Dosage: IV
     Route: 042
  9. OXYCONTIN [Concomitant]
  10. DILTIAZEM [Concomitant]
  11. HYDROXYCHLOROQUINE SULFATE [Concomitant]
  12. ERYTHROMYCIN [Concomitant]
  13. ADVAIR DISKUS 100/50 [Concomitant]

REACTIONS (35)
  - CONDITION AGGRAVATED [None]
  - NOSOCOMIAL INFECTION [None]
  - OEDEMA PERIPHERAL [None]
  - DECREASED APPETITE [None]
  - MALAISE [None]
  - DRUG WITHDRAWAL SYNDROME [None]
  - COMA [None]
  - GASTROOESOPHAGEAL REFLUX DISEASE [None]
  - RHEUMATOID ARTHRITIS [None]
  - NAUSEA [None]
  - CHRONIC OBSTRUCTIVE PULMONARY DISEASE [None]
  - SKIN DISCOLOURATION [None]
  - FALL [None]
  - CELLULITIS [None]
  - POSTOPERATIVE WOUND COMPLICATION [None]
  - PATHOGEN RESISTANCE [None]
  - AGITATION [None]
  - SKIN ATROPHY [None]
  - FLUID OVERLOAD [None]
  - ANAEMIA OF CHRONIC DISEASE [None]
  - CONVULSION [None]
  - ENTEROCOCCUS TEST POSITIVE [None]
  - ANTIBIOTIC LEVEL ABOVE THERAPEUTIC [None]
  - ATRIAL FIBRILLATION [None]
  - ASTHENIA [None]
  - URINARY TRACT INFECTION [None]
  - CONTUSION [None]
  - VEIN DISORDER [None]
  - RENAL FAILURE ACUTE [None]
  - PLEURAL EFFUSION [None]
  - ULTRASOUND KIDNEY ABNORMAL [None]
  - HYPOTHYROIDISM [None]
  - UPPER LIMB FRACTURE [None]
  - SEPSIS [None]
  - HEART RATE INCREASED [None]
